FAERS Safety Report 5454350-0 (Version None)
Quarter: 2007Q3

REPORT INFORMATION
  Report Type: 
  Country: None (occurrence: None)
  Receive Date: 20070917
  Receipt Date: 20070228
  Transmission Date: 20080115
  Serious: Yes (Other)
  Sender: FDA-Public Use
  Company Number: US-ASTRAZENECA-2006UW11543

PATIENT
  Age: 43 Year
  Sex: Female
  Weight: 77.3 kg

DRUGS (9)
  1. SEROQUEL [Suspect]
     Indication: SCHIZOPHRENIA
     Route: 048
  2. SEROQUEL [Suspect]
     Indication: BIPOLAR DISORDER
     Route: 048
  3. SEROQUEL [Suspect]
     Indication: DEPRESSION
     Route: 048
  4. GEODON [Concomitant]
  5. HALDOL [Concomitant]
  6. THORAZINE [Concomitant]
  7. ZYPREXA [Concomitant]
  8. HEROIN [Concomitant]
     Dates: start: 20030101
  9. METHADONE HCL [Concomitant]
     Dates: start: 20030101

REACTIONS (1)
  - PANCREATITIS [None]
